FAERS Safety Report 4389700-X (Version None)
Quarter: 2004Q2

REPORT INFORMATION
  Report Type: 
  Country: None (occurrence: None)
  Receive Date: 20040629
  Receipt Date: 20030919
  Transmission Date: 20050107
  Serious: Yes (Other)
  Sender: FDA-Public Use
  Company Number: US-JNJFOC-20030904823

PATIENT

DRUGS (1)
  1. DURAGESIC [Suspect]
     Dosage: 150 UG/HR, 1 IN 48 HOUR, TRANSDERMAL
     Route: 062

REACTIONS (2)
  - DRUG DEPENDENCE [None]
  - DRUG WITHDRAWAL SYNDROME [None]
